FAERS Safety Report 24424496 (Version 1)
Quarter: 2024Q4

REPORT INFORMATION
  Report Type: Spontaneous
  Country: BE (occurrence: BE)
  Receive Date: 20241010
  Receipt Date: 20241010
  Transmission Date: 20250114
  Serious: Yes (Death, Hospitalization, Other)
  Sender: REGENERON
  Company Number: BE-REGENERON PHARMACEUTICALS, INC.-2024-136522

PATIENT
  Age: 64 Year
  Sex: Female

DRUGS (2)
  1. LIBTAYO [Suspect]
     Active Substance: CEMIPLIMAB-RWLC
     Indication: Non-small cell lung cancer
     Dosage: 350 MG
     Dates: end: 20240826
  2. METHYLPREDNISOLONE [Concomitant]
     Active Substance: METHYLPREDNISOLONE
     Indication: Product used for unknown indication

REACTIONS (2)
  - Acute hepatic failure [Fatal]
  - Coma hepatic [Fatal]
